FAERS Safety Report 8252637-X (Version None)
Quarter: 2012Q2

REPORT INFORMATION
  Report Type: 
  Country: None (occurrence: None)
  Receive Date: 20120402
  Receipt Date: 20110723
  Transmission Date: 20120825
  Serious: No
  Sender: FDA-Public Use
  Company Number: US-ABBOTT-11P-163-0841828-00

PATIENT
  Sex: Male
  Weight: 77.18 kg

DRUGS (5)
  1. NIASPAN [Concomitant]
     Indication: BLOOD CHOLESTEROL INCREASED
  2. ANDROGEL [Suspect]
     Indication: BLOOD TESTOSTERONE DECREASED
     Dosage: 4 PUMPS
     Dates: start: 20110701
  3. PRAVACHOL [Concomitant]
     Indication: BLOOD CHOLESTEROL INCREASED
  4. DILTIAZEM HCL [Concomitant]
     Indication: SUPRAVENTRICULAR EXTRASYSTOLES
  5. MAGNESIUM [Concomitant]
     Indication: SUPRAVENTRICULAR EXTRASYSTOLES

REACTIONS (1)
  - SCROTAL PAIN [None]
